FAERS Safety Report 9337395 (Version 1)
Quarter: 2013Q2

REPORT INFORMATION
  Report Type: Spontaneous
  Country: US (occurrence: US)
  Receive Date: 20130607
  Receipt Date: 20130607
  Transmission Date: 20140414
  Serious: Yes (Other)
  Sender: FDA-Public Use
  Company Number: US-BAYER-2013-068989

PATIENT
  Age: 32 Year
  Sex: Female

DRUGS (4)
  1. SAFYRAL [Suspect]
     Dosage: UNK
     Dates: start: 201107, end: 20111024
  2. LUNESTA [Concomitant]
     Route: 048
  3. SYNTHROID [Concomitant]
     Dosage: 112 UNK, UNK
     Route: 048
  4. ADIPEX [Concomitant]

REACTIONS (3)
  - Deep vein thrombosis [None]
  - Gait disturbance [None]
  - Pain in extremity [None]
